FAERS Safety Report 15710061 (Version 2)
Quarter: 2019Q1

REPORT INFORMATION
  Report Type: Spontaneous
  Country: US (occurrence: US)
  Receive Date: 20181211
  Receipt Date: 20190103
  Transmission Date: 20190417
  Serious: Yes (Hospitalization, Other)
  Sender: FDA-Public Use
  Company Number: US-OTSUKA-2018_016789

PATIENT
  Sex: Female

DRUGS (2)
  1. ABILIFY [Suspect]
     Active Substance: ARIPIPRAZOLE
     Dosage: 5 MG, QD
     Route: 065
     Dates: start: 20040309, end: 20140516
  2. ABILIFY [Suspect]
     Active Substance: ARIPIPRAZOLE
     Indication: BIPOLAR DISORDER
     Dosage: 5 MG, QD
     Route: 065
     Dates: start: 2002, end: 2017

REACTIONS (17)
  - Suicide attempt [Recovered/Resolved]
  - Tachyphrenia [Unknown]
  - Tremor [Unknown]
  - Sleep disorder [Unknown]
  - Eating disorder [Recovered/Resolved]
  - Economic problem [Unknown]
  - Mania [Recovered/Resolved]
  - Pressure of speech [Recovered/Resolved]
  - Hypersexuality [Unknown]
  - Gambling disorder [Recovered/Resolved]
  - Depression [Unknown]
  - Bankruptcy [Unknown]
  - Compulsive shopping [Recovered/Resolved]
  - Binge eating [Unknown]
  - Homeless [Unknown]
  - Suicidal ideation [Recovered/Resolved]
  - Compulsive sexual behaviour [Recovered/Resolved]

NARRATIVE: CASE EVENT DATE: 2003
